FAERS Safety Report 4397177-3 (Version None)
Quarter: 2004Q3

REPORT INFORMATION
  Report Type: 
  Country: None (occurrence: None)
  Receive Date: 20040708
  Receipt Date: 20040623
  Transmission Date: 20050211
  Serious: Yes (Hospitalization)
  Sender: FDA-Public Use
  Company Number: EMADSS2002001190

PATIENT
  Age: 24 Year
  Sex: Male
  Weight: 90 kg

DRUGS (3)
  1. RISPERDAL [Suspect]
     Indication: PSYCHOTIC DISORDER
     Dosage: SEE IMAGE
     Route: 048
     Dates: start: 20000101
  2. HALDOL [Suspect]
     Indication: PSYCHOTIC DISORDER
     Dosage: 15 MG  ORAL
     Route: 048
     Dates: start: 20000101
  3. ERGENYL (VALPROATE SODIUM) UNSPECIFIED [Concomitant]

REACTIONS (1)
  - WEIGHT INCREASED [None]
